FAERS Safety Report 25351774 (Version 1)
Quarter: 2025Q2

REPORT INFORMATION
  Report Type: Spontaneous
  Country: US (occurrence: None)
  Receive Date: 20250523
  Receipt Date: 20250523
  Transmission Date: 20250717
  Serious: Yes (Hospitalization)
  Sender: FDA-CTU
  Company Number: None

PATIENT
  Age: 4 Year
  Sex: Male
  Weight: 16.3 kg

DRUGS (4)
  1. DEXAMETHASONE [Suspect]
     Active Substance: DEXAMETHASONE
  2. MERCAPTOPURINE [Suspect]
     Active Substance: MERCAPTOPURINE
  3. METHOTREXATE [Suspect]
     Active Substance: METHOTREXATE
  4. VINCRISTINE SULFATE [Suspect]
     Active Substance: VINCRISTINE SULFATE

REACTIONS (3)
  - Neutrophil count decreased [None]
  - HCoV-OC43 infection [None]
  - Bacteraemia [None]

NARRATIVE: CASE EVENT DATE: 20250515
